FAERS Safety Report 6305119-6 (Version None)
Quarter: 2009Q3

REPORT INFORMATION
  Report Type: 
  Country: None (occurrence: None)
  Receive Date: 20090811
  Receipt Date: 20090731
  Transmission Date: 20100115
  Serious: Yes (Other)
  Sender: FDA-Public Use
  Company Number: US-PFIZER INC-2009250058

PATIENT
  Sex: Female

DRUGS (7)
  1. PROVERA [Suspect]
     Indication: HORMONE REPLACEMENT THERAPY
     Dosage: 5 MG, UNK
     Route: 048
     Dates: start: 19921101
  2. PROVERA [Suspect]
     Dosage: 10 MG, UNK
     Route: 048
     Dates: start: 19930901
  3. PROVERA [Suspect]
     Dosage: 5 MG, UNK
     Route: 048
     Dates: start: 19941101
  4. PROVERA [Suspect]
     Dosage: UNK
     Route: 048
     Dates: start: 19951101, end: 19961101
  5. PREMARIN [Suspect]
     Indication: HORMONE REPLACEMENT THERAPY
     Dosage: UNK
     Dates: start: 19951101, end: 19961101
  6. PREMPRO [Suspect]
     Indication: HORMONE REPLACEMENT THERAPY
     Dosage: UNK
     Dates: start: 19961101, end: 20000101
  7. SYNTHROID [Concomitant]
     Indication: THYROID DISORDER
     Dosage: UNK
     Dates: start: 19820101

REACTIONS (1)
  - BREAST CANCER [None]
